FAERS Safety Report 6578205-3 (Version None)
Quarter: 2010Q1

REPORT INFORMATION
  Report Type: 
  Country: None (occurrence: None)
  Receive Date: 20100211
  Receipt Date: 20100208
  Transmission Date: 20100710
  Serious: Yes (Hospitalization, Other)
  Sender: FDA-Public Use
  Company Number: IN-ROXANE LABORATORIES, INC.-2010-RO-00136RO

PATIENT
  Age: 19 Year
  Sex: Female

DRUGS (9)
  1. AMLODIPINE [Suspect]
     Indication: BLOOD PRESSURE MANAGEMENT
     Dosage: 10 MG
  2. AMLODIPINE [Suspect]
     Dosage: 5 MG
  3. MYCOPHENOLATE MOFETIL [Suspect]
     Dosage: 1000 MG
  4. CATAPRES [Suspect]
     Indication: BLOOD PRESSURE MANAGEMENT
     Dosage: 100 MG
  5. METOPROLOL TARTRATE [Suspect]
     Indication: BLOOD PRESSURE MANAGEMENT
     Dosage: 300 MCG
  6. TACROLIMUS [Suspect]
     Dosage: 10 MG
  7. TACROLIMUS [Suspect]
     Dosage: 9 MG
  8. TACROLIMUS [Suspect]
     Dosage: 7 MG
  9. PREDNISOLONE [Suspect]

REACTIONS (3)
  - BREAST PAIN [None]
  - GALACTORRHOEA [None]
  - RENAL TRANSPLANT [None]
